FAERS Safety Report 10176076 (Version 2)
Quarter: 2014Q2

REPORT INFORMATION
  Report Type: Report from Study
  Country: BR (occurrence: BR)
  Receive Date: 20140516
  Receipt Date: 20140516
  Transmission Date: 20141212
  Serious: Yes (Hospitalization)
  Sender: FDA-Public Use
  Company Number: BR-ROCHE-1303135

PATIENT
  Sex: Female
  Weight: 92 kg

DRUGS (6)
  1. MABTHERA [Suspect]
     Indication: RHEUMATOID ARTHRITIS
     Route: 042
     Dates: start: 2009, end: 2013
  2. PURAN T4 [Concomitant]
  3. PARACETAMOL [Concomitant]
     Indication: PAIN
  4. OMEGA-3 [Concomitant]
  5. DEPURA [Concomitant]
  6. TRAMAL [Concomitant]
     Indication: PAIN

REACTIONS (2)
  - Immunodeficiency [Not Recovered/Not Resolved]
  - Arthropathy [Recovering/Resolving]
